FAERS Safety Report 23097344 (Version 1)
Quarter: 2023Q4

REPORT INFORMATION
  Report Type: Spontaneous
  Country: US (occurrence: None)
  Receive Date: 20231019
  Receipt Date: 20231019
  Transmission Date: 20240109
  Serious: Yes (Hospitalization)
  Sender: FDA-Public Use
  Company Number: None

PATIENT
  Sex: Female

DRUGS (6)
  1. SUTENT [Suspect]
     Active Substance: SUNITINIB MALATE
     Indication: Gastrointestinal stromal tumour
     Route: 048
     Dates: start: 20201231
  2. FOLIC ACID [Concomitant]
     Active Substance: FOLIC ACID
  3. KLOR-CON [Concomitant]
     Active Substance: POTASSIUM CHLORIDE
  4. LEVOTHYROXINE [Concomitant]
     Active Substance: LEVOTHYROXINE
  5. LISINOPRIL [Concomitant]
     Active Substance: LISINOPRIL
  6. SUNITINIB [Concomitant]
     Active Substance: SUNITINIB

REACTIONS (1)
  - Cardiac disorder [None]
